FAERS Safety Report 19775207 (Version 3)
Quarter: 2022Q3

REPORT INFORMATION
  Report Type: Spontaneous
  Country: US (occurrence: None)
  Receive Date: 20210901
  Receipt Date: 20220726
  Transmission Date: 20221026
  Serious: Yes (Other)
  Sender: FDA-Public Use
  Company Number: 2021A698065

PATIENT
  Age: 38 Year
  Sex: Female
  Weight: 93.4 kg

DRUGS (55)
  1. NEXIUM [Suspect]
     Active Substance: ESOMEPRAZOLE MAGNESIUM
     Indication: Gastrooesophageal reflux disease
     Route: 048
     Dates: start: 2002, end: 2020
  2. NEXIUM [Suspect]
     Active Substance: ESOMEPRAZOLE MAGNESIUM
     Indication: Gastrooesophageal reflux disease
     Dosage: GENERIC
     Route: 065
     Dates: start: 2017
  3. NEXIUM 24HR [Suspect]
     Active Substance: ESOMEPRAZOLE MAGNESIUM
     Indication: Gastrooesophageal reflux disease
     Route: 048
     Dates: start: 2002, end: 2020
  4. NEXIUM 24HR [Suspect]
     Active Substance: ESOMEPRAZOLE MAGNESIUM
     Indication: Gastrooesophageal reflux disease
     Route: 048
     Dates: start: 2014, end: 2020
  5. PRILOSEC [Suspect]
     Active Substance: OMEPRAZOLE MAGNESIUM
     Indication: Gastrooesophageal reflux disease
     Route: 048
     Dates: start: 2002, end: 2020
  6. PRILOSEC [Suspect]
     Active Substance: OMEPRAZOLE MAGNESIUM
     Indication: Gastrooesophageal reflux disease
     Dosage: GENERIC
     Route: 065
     Dates: start: 2017, end: 2019
  7. PRILOSEC [Suspect]
     Active Substance: OMEPRAZOLE MAGNESIUM
     Indication: Gastrooesophageal reflux disease
     Dosage: GENERIC
     Route: 065
  8. PREVACID [Suspect]
     Active Substance: LANSOPRAZOLE
     Indication: Gastrooesophageal reflux disease
     Route: 065
     Dates: start: 2002, end: 2020
  9. DEXILANT [Suspect]
     Active Substance: DEXLANSOPRAZOLE
     Indication: Gastrooesophageal reflux disease
     Route: 065
     Dates: start: 20170309
  10. DEXILANT [Suspect]
     Active Substance: DEXLANSOPRAZOLE
     Indication: Gastrooesophageal reflux disease
     Route: 065
     Dates: start: 2017, end: 2018
  11. KETOROLAC [Concomitant]
     Active Substance: KETOROLAC TROMETHAMINE
     Indication: Analgesic therapy
     Route: 065
     Dates: start: 2020
  12. CIPROFLOXACIN [Concomitant]
     Active Substance: CIPROFLOXACIN
     Indication: Infection
     Route: 065
     Dates: start: 2017
  13. LEVAQUIN [Concomitant]
     Active Substance: LEVOFLOXACIN
     Indication: Infection
     Route: 065
     Dates: start: 2005
  14. MEVACOR [Concomitant]
     Active Substance: LOVASTATIN
     Indication: Blood cholesterol increased
     Route: 065
     Dates: start: 2018, end: 2019
  15. AMITRIPTYLINE [Concomitant]
     Active Substance: AMITRIPTYLINE
     Indication: Pain
     Route: 065
     Dates: start: 2016, end: 2017
  16. ELAVIL [Concomitant]
     Active Substance: AMITRIPTYLINE HYDROCHLORIDE
     Indication: Pain
     Route: 065
     Dates: start: 2016, end: 2017
  17. AXID [Concomitant]
     Active Substance: NIZATIDINE
  18. CIMETIDINE [Concomitant]
     Active Substance: CIMETIDINE
  19. DUEXIS [Concomitant]
     Active Substance: FAMOTIDINE\IBUPROFEN
  20. FAMOTIDINE [Concomitant]
     Active Substance: FAMOTIDINE
  21. CALCIUM CARBONATE\FAMOTIDINE\MAGNESIUM HYDROXIDE [Concomitant]
     Active Substance: CALCIUM CARBONATE\FAMOTIDINE\MAGNESIUM HYDROXIDE
  22. FLUXID [Concomitant]
     Active Substance: FAMOTIDINE
  23. TAGAMET [Concomitant]
     Active Substance: CIMETIDINE
  24. ZANTAC [Concomitant]
     Active Substance: RANITIDINE HYDROCHLORIDE
  25. VITAMIN B12 [Concomitant]
     Active Substance: CYANOCOBALAMIN
  26. FLOMAX [Concomitant]
     Active Substance: TAMSULOSIN HYDROCHLORIDE
  27. REGLAN [Concomitant]
     Active Substance: METOCLOPRAMIDE HYDROCHLORIDE
  28. PYRIDIUM [Concomitant]
     Active Substance: PHENAZOPYRIDINE
  29. TRIPILIX [Concomitant]
  30. PROVENTIL [Concomitant]
     Active Substance: ALBUTEROL
  31. TUMS [Concomitant]
     Active Substance: CALCIUM CARBONATE
  32. PEPTO-BISMOL [Concomitant]
     Active Substance: BISMUTH SUBSALICYLATE
  33. SULFABENZAMIDE [Concomitant]
     Active Substance: SULFABENZAMIDE
  34. ZANAFLEX [Concomitant]
     Active Substance: TIZANIDINE HYDROCHLORIDE
  35. PROMETHAZINE HYDROCHLORIDE [Concomitant]
     Active Substance: PROMETHAZINE HYDROCHLORIDE
  36. VALIUM [Concomitant]
     Active Substance: DIAZEPAM
  37. LINZESS [Concomitant]
     Active Substance: LINACLOTIDE
  38. KLONOPIN [Concomitant]
     Active Substance: CLONAZEPAM
  39. PREDNISONE [Concomitant]
     Active Substance: PREDNISONE
  40. AMITIZA [Concomitant]
     Active Substance: LUBIPROSTONE
  41. ACETAMINOPHEN\HYDROCODONE BITARTRATE [Concomitant]
     Active Substance: ACETAMINOPHEN\HYDROCODONE BITARTRATE
  42. LACTULOSE [Concomitant]
     Active Substance: LACTULOSE
  43. ROXICODONE [Concomitant]
     Active Substance: OXYCODONE HYDROCHLORIDE
  44. ADDERALL [Concomitant]
     Active Substance: AMPHETAMINE ASPARTATE\AMPHETAMINE SULFATE\DEXTROAMPHETAMINE SACCHARATE\DEXTROAMPHETAMINE SULFATE
  45. GEMFIBROZIL [Concomitant]
     Active Substance: GEMFIBROZIL
  46. CREON [Concomitant]
     Active Substance: PANCRELIPASE AMYLASE\PANCRELIPASE LIPASE\PANCRELIPASE PROTEASE
  47. TRILPIX [Concomitant]
  48. ZOFRAN [Concomitant]
     Active Substance: ONDANSETRON HYDROCHLORIDE
  49. OZEMPIC [Concomitant]
     Active Substance: SEMAGLUTIDE
  50. TRAZODONE [Concomitant]
     Active Substance: TRAZODONE HYDROCHLORIDE
  51. NITROGLYCERIN [Concomitant]
     Active Substance: NITROGLYCERIN
  52. CARAFATE [Concomitant]
     Active Substance: SUCRALFATE
  53. PLENVU [Concomitant]
     Active Substance: ASCORBIC ACID\POLYETHYLENE GLYCOL 3350\POTASSIUM CHLORIDE\SODIUM ASCORBATE\SODIUM CHLORIDE\SODIUM SU
  54. MAGNESIUM SULFATE [Concomitant]
     Active Substance: MAGNESIUM SULFATE
  55. OMNIPAQUE [Concomitant]
     Active Substance: IOHEXOL

REACTIONS (3)
  - Acute kidney injury [Not Recovered/Not Resolved]
  - Renal failure [Unknown]
  - Gastrooesophageal reflux disease [Not Recovered/Not Resolved]

NARRATIVE: CASE EVENT DATE: 20140101
